FAERS Safety Report 15851931 (Version 3)
Quarter: 2019Q2

REPORT INFORMATION
  Report Type: Report from Study
  Country: US (occurrence: US)
  Receive Date: 20190122
  Receipt Date: 20190410
  Transmission Date: 20190711
  Serious: Yes (Hospitalization, Other)
  Sender: FDA-Public Use
  Company Number: US-GILEAD-2019-0386057

PATIENT
  Age: 44 Year
  Sex: Female

DRUGS (3)
  1. AMBRISENTAN [Suspect]
     Active Substance: AMBRISENTAN
     Indication: PRODUCT USED FOR UNKNOWN INDICATION
     Dosage: 5 MG, QD
     Route: 065
     Dates: start: 20151217
  2. ADCIRCA [Concomitant]
     Active Substance: TADALAFIL
  3. DILTIAZEM. [Concomitant]
     Active Substance: DILTIAZEM

REACTIONS (12)
  - Haemorrhage [Unknown]
  - Systemic lupus erythematosus [Unknown]
  - Road traffic accident [Recovered/Resolved]
  - Intra-abdominal haemorrhage [Unknown]
  - Renal disorder [Unknown]
  - Fluid retention [Unknown]
  - Loss of consciousness [Unknown]
  - Renal haematoma [Unknown]
  - Blood pressure decreased [Unknown]
  - Post-traumatic stress disorder [Not Recovered/Not Resolved]
  - Pleural effusion [Not Recovered/Not Resolved]
  - Pericardial effusion [Not Recovered/Not Resolved]

NARRATIVE: CASE EVENT DATE: 20181120
